FAERS Safety Report 7619778-9 (Version None)
Quarter: 2011Q3

REPORT INFORMATION
  Report Type: 
  Country: None (occurrence: None)
  Receive Date: 20110719
  Receipt Date: 20110713
  Transmission Date: 20111222
  Serious: Yes (Hospitalization)
  Sender: FDA-Public Use
  Company Number: JP-EISAI INC-E2090-01670-SPO-JP

PATIENT
  Age: 78 Year
  Sex: Male

DRUGS (3)
  1. ZONISAMIDE [Suspect]
     Route: 048
  2. ZONISAMIDE [Suspect]
     Dosage: UNKNOWN
     Route: 048
  3. ZONISAMIDE [Suspect]
     Route: 048

REACTIONS (1)
  - RASH GENERALISED [None]
